FAERS Safety Report 13801729 (Version 1)
Quarter: 2017Q3

REPORT INFORMATION
  Report Type: Spontaneous
  Country: GB (occurrence: GB)
  Receive Date: 20170727
  Receipt Date: 20170727
  Transmission Date: 20171127
  Serious: Yes (Hospitalization, Other)
  Sender: FDA-Public Use
  Company Number: GB-MYLANLABS-2017M1043451

PATIENT

DRUGS (16)
  1. CARBOCYSTEINE [Suspect]
     Active Substance: CARBOCYSTEINE
     Indication: PRODUCT USED FOR UNKNOWN INDICATION
     Route: 048
     Dates: end: 20170604
  2. PARACETAMOL [Concomitant]
     Active Substance: ACETAMINOPHEN
  3. QUININE SULFATE. [Concomitant]
     Active Substance: QUININE SULFATE
  4. ENOXAPARIN SODIUM. [Concomitant]
     Active Substance: ENOXAPARIN SODIUM
  5. FUSIDIC ACID [Concomitant]
     Active Substance: FUSIDIC ACID
  6. CLOPIDOGREL [Suspect]
     Active Substance: CLOPIDOGREL BISULFATE
     Indication: CEREBROVASCULAR ACCIDENT
     Route: 048
     Dates: end: 20170629
  7. COTRIMOXAZOLE [Concomitant]
     Active Substance: SULFAMETHOXAZOLE\TRIMETHOPRIM
  8. OMEPRAZOLE. [Concomitant]
     Active Substance: OMEPRAZOLE
  9. ALOGLIPTIN. [Concomitant]
     Active Substance: ALOGLIPTIN
  10. CALCIUM RESONIUM [Concomitant]
  11. CODEINE [Concomitant]
     Active Substance: CODEINE
  12. DIGOXIN. [Concomitant]
     Active Substance: DIGOXIN
  13. DOXYCYCLINE HYDROCHLORIDE [Concomitant]
     Active Substance: DOXYCYCLINE HYDROCHLORIDE
  14. METFORMIN [Concomitant]
     Active Substance: METFORMIN HYDROCHLORIDE
  15. RAMIPRIL. [Concomitant]
     Active Substance: RAMIPRIL
  16. RANITIDINE. [Concomitant]
     Active Substance: RANITIDINE

REACTIONS (4)
  - Duodenitis [Recovering/Resolving]
  - Melaena [Recovering/Resolving]
  - Duodenal ulcer haemorrhage [Recovering/Resolving]
  - Haematemesis [Recovering/Resolving]

NARRATIVE: CASE EVENT DATE: 20170629
